FAERS Safety Report 9959125 (Version 1)
Quarter: 2014Q1

REPORT INFORMATION
  Report Type: Report from Study
  Country: US (occurrence: US)
  Receive Date: 20140305
  Receipt Date: 20140305
  Transmission Date: 20141002
  Serious: No
  Sender: FDA-Public Use
  Company Number: US-ABBVIE-13P-163-1102295-00

PATIENT
  Age: 56 Year
  Sex: Male
  Weight: 69.01 kg

DRUGS (8)
  1. HUMIRA [Suspect]
     Indication: CROHN^S DISEASE
     Dates: start: 201304, end: 201304
  2. HUMIRA [Suspect]
  3. HUMIRA [Suspect]
  4. UNNAMED MEDICATION [Concomitant]
     Indication: HYPERTENSION
  5. HYDROCHLOROTHIAZIDE [Concomitant]
     Indication: HYPERTENSION
  6. LORTAB [Concomitant]
     Indication: ABDOMINAL PAIN
  7. XANAX [Concomitant]
     Indication: SLEEP DISORDER THERAPY
  8. XANAX [Concomitant]
     Indication: ABDOMINAL DISCOMFORT

REACTIONS (1)
  - Injection site erythema [Not Recovered/Not Resolved]
